FAERS Safety Report 17487114 (Version 1)
Quarter: 2020Q1

REPORT INFORMATION
  Report Type: Spontaneous
  Country: US (occurrence: US)
  Receive Date: 20200303
  Receipt Date: 20200303
  Transmission Date: 20200409
  Serious: No
  Sender: FDA-Public Use
  Company Number: US-BEH-2020113388

PATIENT
  Age: 16 Year
  Sex: Female

DRUGS (1)
  1. HIZENTRA [Suspect]
     Active Substance: HUMAN IMMUNOGLOBULIN G
     Indication: IMMUNODEFICIENCY COMMON VARIABLE
     Dosage: 80 MILLILITER, QOW
     Route: 058
     Dates: start: 20190604

REACTIONS (2)
  - Injection site pruritus [Unknown]
  - Injection site erythema [Unknown]
